FAERS Safety Report 13606102 (Version 1)
Quarter: 2017Q2

REPORT INFORMATION
  Report Type: Spontaneous
  Country: US (occurrence: US)
  Receive Date: 20170602
  Receipt Date: 20170602
  Transmission Date: 20170830
  Serious: No
  Sender: FDA-Public Use
  Company Number: None

PATIENT
  Age: 68 Year
  Sex: Female

DRUGS (1)
  1. EPCLUSA [Suspect]
     Active Substance: SOFOSBUVIR\VELPATASVIR
     Dosage: 400-100 QD ORAL
     Route: 048

REACTIONS (2)
  - Headache [None]
  - Urinary tract infection [None]

NARRATIVE: CASE EVENT DATE: 20170524
